FAERS Safety Report 16992431 (Version 1)
Quarter: 2019Q4

REPORT INFORMATION
  Report Type: Spontaneous
  Country: US (occurrence: US)
  Receive Date: 20191104
  Receipt Date: 20191104
  Transmission Date: 20200122
  Serious: Yes (Other)
  Sender: FDA-Public Use
  Company Number: None

PATIENT
  Age: 49 Year
  Sex: Female
  Weight: 112.5 kg

DRUGS (1)
  1. NITROFURANTOIN. [Suspect]
     Active Substance: NITROFURANTOIN
     Indication: URINARY TRACT INFECTION
     Dosage: ?          QUANTITY:10 TABLET(S);?
     Route: 048
     Dates: start: 20191021, end: 20191022

REACTIONS (7)
  - Myalgia [None]
  - Pyrexia [None]
  - Asthenia [None]
  - Paraesthesia [None]
  - Hypoaesthesia [None]
  - Chills [None]
  - Peripheral swelling [None]

NARRATIVE: CASE EVENT DATE: 20191021
